FAERS Safety Report 24778068 (Version 1)
Quarter: 2024Q4

REPORT INFORMATION
  Report Type: Spontaneous
  Country: AT (occurrence: None)
  Receive Date: 20241225
  Receipt Date: 20241225
  Transmission Date: 20250115
  Serious: Yes (Disabling)
  Sender: Public
  Company Number: None

PATIENT
  Age: 30 Year
  Sex: Female
  Weight: 65 kg

DRUGS (4)
  1. MIRTAZAPINE [Suspect]
     Active Substance: MIRTAZAPINE
     Indication: Insomnia
     Dosage: FREQUENCY : AT BEDTIME;?
     Route: 048
     Dates: start: 20200108, end: 20200203
  2. CREATINE [Concomitant]
     Active Substance: CREATINE
  3. TAURINE [Concomitant]
     Active Substance: TAURINE
  4. Cistanche [Concomitant]

REACTIONS (12)
  - Sexual dysfunction [None]
  - Genital anaesthesia [None]
  - Anorgasmia [None]
  - Emotional disorder [None]
  - Anhedonia [None]
  - Sleep disorder [None]
  - Impaired work ability [None]
  - Product communication issue [None]
  - Autonomic nervous system imbalance [None]
  - Heart rate increased [None]
  - Exercise tolerance decreased [None]
  - Sexual dysfunction [None]

NARRATIVE: CASE EVENT DATE: 20200203
